FAERS Safety Report 4546226-8 (Version None)
Quarter: 2005Q1

REPORT INFORMATION
  Report Type: 
  Country: None (occurrence: None)
  Receive Date: 20050103
  Receipt Date: 20041220
  Transmission Date: 20050727
  Serious: Yes (Hospitalization)
  Sender: FDA-Public Use
  Company Number: 04P-144-0268808-00

PATIENT
  Age: 55 Year
  Sex: Male
  Weight: 87 kg

DRUGS (5)
  1. HUMIRA [Suspect]
     Indication: RHEUMATOID ARTHRITIS
     Dosage: 40 MG, 1 IN 2 WK, SUBCUTANEOUS
     Route: 058
     Dates: start: 20030801, end: 20040102
  2. LEFLUNOMIDE [Concomitant]
  3. ACECLOFENAC [Concomitant]
  4. OMEPRAZOLE [Concomitant]
  5. METHOTREXATE [Concomitant]

REACTIONS (6)
  - BURSITIS [None]
  - CHOLELITHIASIS [None]
  - LYMPHADENITIS [None]
  - OEDEMA PERIPHERAL [None]
  - RHEUMATOID ARTHRITIS [None]
  - VENOUS INSUFFICIENCY [None]
